FAERS Safety Report 22177106 (Version 1)
Quarter: 2023Q2

REPORT INFORMATION
  Report Type: Spontaneous
  Country: US (occurrence: None)
  Receive Date: 20230405
  Receipt Date: 20230405
  Transmission Date: 20230722
  Serious: No
  Sender: FDA-Public Use
  Company Number: 2023A059585

PATIENT
  Sex: Female
  Weight: 71.7 kg

DRUGS (1)
  1. FARXIGA [Suspect]
     Active Substance: DAPAGLIFLOZIN PROPANEDIOL
     Indication: Blood calcium increased
     Route: 048
     Dates: start: 20230307

REACTIONS (2)
  - Blood glucose increased [Unknown]
  - Off label use [Unknown]
